FAERS Safety Report 5099837-8 (Version None)
Quarter: 2006Q3

REPORT INFORMATION
  Report Type: 
  Country: None (occurrence: None)
  Receive Date: 20060908
  Receipt Date: 20060817
  Transmission Date: 20061208
  Serious: Yes (Hospitalization)
  Sender: FDA-Public Use
  Company Number: US-AMGEN-US190537

PATIENT
  Sex: Female

DRUGS (2)
  1. ENBREL [Suspect]
     Indication: RHEUMATOID ARTHRITIS
     Route: 058
     Dates: start: 20060101
  2. PLAQUENIL [Concomitant]
     Route: 048
     Dates: start: 20060701

REACTIONS (3)
  - PERICARDITIS [None]
  - PLEURISY [None]
  - VAGINAL HAEMORRHAGE [None]
